FAERS Safety Report 15083607 (Version 4)
Quarter: 2019Q2

REPORT INFORMATION
  Report Type: Spontaneous
  Country: US (occurrence: US)
  Receive Date: 20180628
  Receipt Date: 20190424
  Transmission Date: 20190711
  Serious: No
  Sender: FDA-Public Use
  Company Number: US-CLOVIS ONCOLOGY-CLO-2018-000393

PATIENT
  Age: 65 Year
  Sex: Female

DRUGS (4)
  1. RUBRACA [Suspect]
     Active Substance: RUCAPARIB CAMSYLATE
     Dosage: 300 MG, TID
     Route: 048
     Dates: end: 2019
  2. RUBRACA [Suspect]
     Active Substance: RUCAPARIB CAMSYLATE
     Indication: OVARIAN CANCER
     Dosage: 600 MG, BID
     Route: 048
     Dates: start: 20180410, end: 201804
  3. RUBRACA [Suspect]
     Active Substance: RUCAPARIB CAMSYLATE
     Dosage: 300 MG, BID
     Route: 048
     Dates: start: 201804
  4. RUBRACA [Suspect]
     Active Substance: RUCAPARIB CAMSYLATE
     Dosage: UNK
     Dates: start: 20180301, end: 20190306

REACTIONS (3)
  - Product dose omission [Unknown]
  - Ovarian cancer recurrent [Not Recovered/Not Resolved]
  - Intentional underdose [Unknown]

NARRATIVE: CASE EVENT DATE: 201804
